FAERS Safety Report 13822297 (Version 1)
Quarter: 2017Q3

REPORT INFORMATION
  Report Type: Spontaneous
  Country: US (occurrence: US)
  Receive Date: 20170801
  Receipt Date: 20170801
  Transmission Date: 20171127
  Serious: No
  Sender: FDA-Public Use
  Company Number: US-IMPAX LABORATORIES, INC-2016-IPXL-00656

PATIENT
  Age: 21 Year
  Sex: Male
  Weight: 86 kg

DRUGS (2)
  1. ALBENZA [Suspect]
     Active Substance: ALBENDAZOLE
     Indication: ENTEROBIASIS
     Dosage: 200 MG, 2 TABLETS
     Route: 048
     Dates: start: 201606, end: 201606
  2. ALBENZA [Suspect]
     Active Substance: ALBENDAZOLE
     Dosage: UNK
     Route: 048
     Dates: start: 201606

REACTIONS (2)
  - Product use in unapproved indication [Not Recovered/Not Resolved]
  - Disease recurrence [Not Recovered/Not Resolved]

NARRATIVE: CASE EVENT DATE: 201606
